FAERS Safety Report 12240268 (Version 2)
Quarter: 2016Q2

REPORT INFORMATION
  Report Type: Report from Study
  Country: US (occurrence: US)
  Receive Date: 20160405
  Receipt Date: 20160509
  Transmission Date: 20160815
  Serious: Yes (Death, Hospitalization, Other)
  Sender: FDA-Public Use
  Company Number: US-GILEAD-2016-0206001

PATIENT
  Age: 50 Year
  Sex: Female

DRUGS (3)
  1. ADEMPAS [Concomitant]
     Active Substance: RIOCIGUAT
  2. AMBRISENTAN [Suspect]
     Active Substance: AMBRISENTAN
     Indication: PRODUCT USED FOR UNKNOWN INDICATION
     Dosage: 10 MG, QD
     Route: 065
     Dates: start: 20141001
  3. REMODULIN [Concomitant]
     Active Substance: TREPROSTINIL

REACTIONS (3)
  - Right ventricular failure [Fatal]
  - Pulmonary hypertension [Fatal]
  - Respiratory failure [Fatal]
